FAERS Safety Report 4700007-0 (Version None)
Quarter: 2005Q2

REPORT INFORMATION
  Report Type: 
  Country: None (occurrence: None)
  Receive Date: 20050623
  Receipt Date: 20050609
  Transmission Date: 20051028
  Serious: Yes (Hospitalization)
  Sender: FDA-Public Use
  Company Number: 200412213BCC

PATIENT
  Sex: Male

DRUGS (8)
  1. ALEVE [Suspect]
     Indication: DEMENTIA ALZHEIMER'S TYPE
     Dosage: BID, ORAL
     Route: 048
     Dates: start: 20030701, end: 20040128
  2. ALEVE [Suspect]
     Indication: PROPHYLAXIS
     Dosage: BID, ORAL
     Route: 048
     Dates: start: 20030701, end: 20040128
  3. ASPIRIN [Concomitant]
  4. TUMS [Concomitant]
  5. CARDIZEM [Concomitant]
  6. NYTOL [Concomitant]
  7. SIMPLE SLEEP [Concomitant]
  8. LUMIGAN [Concomitant]

REACTIONS (2)
  - CEREBROVASCULAR ACCIDENT [None]
  - GRAFT COMPLICATION [None]
